FAERS Safety Report 24253086 (Version 1)
Quarter: 2024Q3

REPORT INFORMATION
  Report Type: Spontaneous
  Country: GB (occurrence: GB)
  Receive Date: 20240827
  Receipt Date: 20240827
  Transmission Date: 20241017
  Serious: Yes (Life-Threatening, Hospitalization)
  Sender: MACLEODS
  Company Number: GB-MLMSERVICE-20240807-PI154541-00105-1

PATIENT

DRUGS (1)
  1. CLOBETASOL [Suspect]
     Active Substance: CLOBETASOL
     Indication: Epidermolysis bullosa
     Dosage: PRESCRIBED 100 G OF CLOBETASOL PROPIONATE
     Route: 061

REACTIONS (3)
  - Secondary adrenocortical insufficiency [Recovered/Resolved]
  - Adrenocortical insufficiency acute [Recovered/Resolved]
  - Hypokalaemia [Unknown]
